FAERS Safety Report 4565751-7 (Version None)
Quarter: 2005Q1

REPORT INFORMATION
  Report Type: 
  Country: None (occurrence: None)
  Receive Date: 20050126
  Receipt Date: 20050113
  Transmission Date: 20050727
  Serious: No
  Sender: FDA-Public Use
  Company Number: 2005UW00648

PATIENT
  Age: 72 Year
  Sex: Female
  Weight: 65.77 kg

DRUGS (4)
  1. NOLVADEX [Suspect]
     Indication: BREAST CANCER
     Dates: start: 20020101
  2. INDERAL [Concomitant]
  3. KLONOPIN [Concomitant]
  4. AMITRIPTYLINE [Concomitant]

REACTIONS (5)
  - BACK PAIN [None]
  - HEADACHE [None]
  - MUSCLE INJURY [None]
  - NECK PAIN [None]
  - NERVE INJURY [None]
